FAERS Safety Report 5011437-4 (Version None)
Quarter: 2006Q2

REPORT INFORMATION
  Report Type: 
  Country: None (occurrence: None)
  Receive Date: 20060524
  Receipt Date: 20060515
  Transmission Date: 20061013
  Serious: Yes (Death)
  Sender: FDA-Public Use
  Company Number: TPG2006A00198

PATIENT
  Age: 60 Year
  Sex: Male

DRUGS (9)
  1. ACTOS [Suspect]
     Indication: DIABETES MELLITUS NON-INSULIN-DEPENDENT
     Dosage: 15 MG (15 MG, 1 IN 1 D) PER ORAL
     Route: 048
     Dates: start: 20060101, end: 20060217
  2. BEZAFIBRATE (BEZAFIBRATE) [Concomitant]
  3. FUROSEMIDE [Concomitant]
  4. CARVEDILOL [Concomitant]
  5. ASPIRIN [Concomitant]
  6. TRAMADOL HCL [Concomitant]
  7. INSUMAN COMB (ISOPHANE INSULIN, INSULIN HUMAN) [Concomitant]
  8. OMEPRAZOLE [Concomitant]
  9. DIGITOXIN TAB [Concomitant]

REACTIONS (4)
  - HEPATIC FAILURE [None]
  - HEPATIC FIBROSIS [None]
  - HEPATIC NECROSIS [None]
  - HEPATOTOXICITY [None]
